FAERS Safety Report 4810099-6 (Version None)
Quarter: 2005Q4

REPORT INFORMATION
  Report Type: 
  Country: None (occurrence: None)
  Receive Date: 20051024
  Receipt Date: 20051012
  Transmission Date: 20060501
  Serious: Yes (Death)
  Sender: FDA-Public Use
  Company Number: 2005116309

PATIENT
  Age: 55 Year
  Sex: Male

DRUGS (7)
  1. CELEBREX [Suspect]
     Indication: PSORIATIC ARTHROPATHY
     Dosage: 400 MG (200 MG, 2 IN 1 D), ORAL
     Route: 048
  2. COVERSYL PLUS (INDAPAMIDE, PERINODOPRIL ERBUMINE) [Concomitant]
  3. LIPITOR [Concomitant]
  4. NORVASC [Concomitant]
  5. RIDAURA [Concomitant]
  6. SULFASALAZINE [Concomitant]
  7. PREDNISONE [Concomitant]

REACTIONS (1)
  - ACUTE MYOCARDIAL INFARCTION [None]
